FAERS Safety Report 16630624 (Version 2)
Quarter: 2019Q3

REPORT INFORMATION
  Report Type: Spontaneous
  Country: US (occurrence: US)
  Receive Date: 20190725
  Receipt Date: 20190807
  Transmission Date: 20191004
  Serious: No
  Sender: FDA-Public Use
  Company Number: US-JNJFOC-20190725263

PATIENT
  Sex: Female
  Weight: 147.55 kg

DRUGS (2)
  1. TYLENOL [Suspect]
     Active Substance: ACETAMINOPHEN
     Indication: PAIN IN EXTREMITY
     Dosage: STARTED BY TAKING 2 AT A TIME BUT INCREASED IT TO 6 TABLETS PER DOSE THE LAST TWO TIMES, 4 TIMES A D
     Route: 048
     Dates: start: 20190701
  2. TYLENOL [Suspect]
     Active Substance: ACETAMINOPHEN
     Indication: BACK PAIN

REACTIONS (2)
  - Drug ineffective [Unknown]
  - Overdose [Unknown]
